FAERS Safety Report 8087656-X (Version None)
Quarter: 2012Q1

REPORT INFORMATION
  Report Type: 
  Country: None (occurrence: None)
  Receive Date: 20120128
  Receipt Date: 20110410
  Transmission Date: 20120608
  Serious: No
  Sender: FDA-Public Use
  Company Number: US-ABBOTT-11P-163-0717917-00

PATIENT
  Age: 29 Year
  Sex: Male

DRUGS (2)
  1. HUMIRA [Suspect]
     Indication: CROHN'S DISEASE
     Dosage: 2ND DOSE
     Dates: start: 20110328
  2. HUMIRA [Suspect]
     Dosage: 1ST DOSE
     Dates: start: 20110301

REACTIONS (1)
  - ARTHRALGIA [None]
